FAERS Safety Report 20700393 (Version 1)
Quarter: 2022Q2

REPORT INFORMATION
  Report Type: Spontaneous
  Country: US (occurrence: US)
  Receive Date: 20220412
  Receipt Date: 20220412
  Transmission Date: 20220721
  Serious: Yes (Other)
  Sender: FDA-Public Use
  Company Number: US-AMGEN-USASP2022063379

PATIENT
  Age: 68 Year
  Sex: Male

DRUGS (1)
  1. INFLIXIMAB [Suspect]
     Active Substance: INFLIXIMAB
     Indication: Pneumonitis
     Dosage: 420 MILLIGRAM
     Route: 042

REACTIONS (3)
  - Pulmonary mass [Unknown]
  - Drug effective for unapproved indication [Unknown]
  - Off label use [Unknown]
